FAERS Safety Report 5334910-8 (Version None)
Quarter: 2007Q2

REPORT INFORMATION
  Report Type: 
  Country: None (occurrence: None)
  Receive Date: 20070525
  Receipt Date: 20070517
  Transmission Date: 20071010
  Serious: Yes (Other)
  Sender: FDA-Public Use
  Company Number: US-ROCHE-498179

PATIENT
  Sex: Female

DRUGS (1)
  1. XELODA [Suspect]
     Indication: BREAST CANCER
     Dosage: ^PATIENT ON XELODA FOR YEARS.^
     Route: 065

REACTIONS (2)
  - BRAIN NEOPLASM [None]
  - NEOPLASM [None]
